FAERS Safety Report 6268753-8 (Version None)
Quarter: 2009Q3

REPORT INFORMATION
  Report Type: 
  Country: None (occurrence: None)
  Receive Date: 20090713
  Receipt Date: 20090713
  Transmission Date: 20100115
  Serious: No
  Sender: FDA-Public Use
  Company Number: None

PATIENT
  Sex: Male
  Weight: 83.0083 kg

DRUGS (1)
  1. ZICAM GLUCONICUM 2X ZICAM LLC - PHOENIX, AZ 85016 [Suspect]
     Indication: NASOPHARYNGITIS
     Dates: start: 20040101, end: 20070130

REACTIONS (1)
  - ANOSMIA [None]
